FAERS Safety Report 14716780 (Version 4)
Quarter: 2018Q2

REPORT INFORMATION
  Report Type: Spontaneous
  Country: CN (occurrence: CN)
  Receive Date: 20180404
  Receipt Date: 20180418
  Transmission Date: 20180711
  Serious: Yes (Death, Life-Threatening, Hospitalization, Other)
  Sender: FDA-Public Use
  Company Number: CN-009507513-1804CHN000349

PATIENT
  Age: 63 Year
  Sex: Male

DRUGS (2)
  1. SINGULAIR [Suspect]
     Active Substance: MONTELUKAST SODIUM
     Indication: HYPERSENSITIVITY
  2. SINGULAIR [Suspect]
     Active Substance: MONTELUKAST SODIUM
     Indication: RHINITIS ALLERGIC
     Dosage: 10 MG (TOTAL 3-4 BOXES), UNK
     Route: 048

REACTIONS (7)
  - Arthralgia [Unknown]
  - Depression [Unknown]
  - Abdominal discomfort [Unknown]
  - Anxiety [Unknown]
  - Completed suicide [Fatal]
  - Abnormal behaviour [Unknown]
  - Cardiac arrest [Recovered/Resolved]

NARRATIVE: CASE EVENT DATE: 201712
